FAERS Safety Report 4829540-8 (Version None)
Quarter: 2005Q4

REPORT INFORMATION
  Report Type: 
  Country: None (occurrence: None)
  Receive Date: 20051116
  Receipt Date: 20050930
  Transmission Date: 20060501
  Serious: Yes (Hospitalization)
  Sender: FDA-Public Use
  Company Number: PHEH2005US11230

PATIENT
  Age: 29 Year
  Sex: Male
  Weight: 75 kg

DRUGS (2)
  1. SERENTIL [Suspect]
     Dosage: 100 MG, BID
  2. LITHOBID [Concomitant]
     Dosage: 600MG BID, 300MG QD

REACTIONS (7)
  - AGGRESSION [None]
  - BACK PAIN [None]
  - EAR DEFORMITY ACQUIRED [None]
  - EXCESSIVE MASTURBATION [None]
  - RASH PAPULAR [None]
  - SKIN ULCER [None]
  - TORTICOLLIS [None]
